FAERS Safety Report 9450877 (Version 1)
Quarter: 2013Q3

REPORT INFORMATION
  Report Type: Spontaneous
  Country: US (occurrence: US)
  Receive Date: 20130809
  Receipt Date: 20130809
  Transmission Date: 20140515
  Serious: Yes (Other)
  Sender: FDA-Public Use
  Company Number: CHPA2013US012475

PATIENT
  Sex: Female

DRUGS (2)
  1. PERDIEM OVERNIGHT RELIEF PILLS [Suspect]
     Indication: GASTROINTESTINAL DISORDER
     Dosage: 2 DF, BID
     Route: 048
  2. PERDIEM FIBER [Suspect]
     Indication: GASTROINTESTINAL DISORDER
     Dosage: UNK, UNK
     Route: 048

REACTIONS (4)
  - Fibromyalgia [Not Recovered/Not Resolved]
  - Fall [Recovered/Resolved]
  - Off label use [Unknown]
  - Incorrect drug administration duration [Unknown]
